FAERS Safety Report 6381033-5 (Version None)
Quarter: 2009Q3

REPORT INFORMATION
  Report Type: 
  Country: None (occurrence: None)
  Receive Date: 20090925
  Receipt Date: 20090925
  Transmission Date: 20100115
  Serious: Yes (Other)
  Sender: FDA-Public Use
  Company Number: None

PATIENT
  Sex: Female
  Weight: 89.3586 kg

DRUGS (2)
  1. CLINDAMYCIN [Suspect]
     Indication: LOCALISED INFECTION
     Dosage: 4 TIMES DAILY
     Dates: start: 20090910
  2. CLINDAMYCIN [Suspect]
     Indication: LOCALISED INFECTION
     Dosage: 4 TIMES DAILY
     Dates: start: 20090911

REACTIONS (4)
  - ABDOMINAL PAIN UPPER [None]
  - INSOMNIA [None]
  - MUSCLE SPASMS [None]
  - ULCER [None]
